FAERS Safety Report 10055629 (Version 2)
Quarter: 2014Q2

REPORT INFORMATION
  Report Type: Spontaneous
  Country: IT (occurrence: IT)
  Receive Date: 20140403
  Receipt Date: 20140403
  Transmission Date: 20141212
  Serious: Yes (Other)
  Sender: FDA-Public Use
  Company Number: IT-DRREDDYS-GER/ITL/13/0030698

PATIENT
  Age: 47 Year
  Sex: Male

DRUGS (5)
  1. RISPERIDONE [Suspect]
     Indication: MENTAL DISORDER
     Route: 048
     Dates: start: 20120901, end: 20120930
  2. TEGRETOL [Concomitant]
     Indication: PRODUCT USED FOR UNKNOWN INDICATION
  3. VALIUM [Concomitant]
     Indication: PRODUCT USED FOR UNKNOWN INDICATION
  4. DINTOINA [Concomitant]
     Indication: PRODUCT USED FOR UNKNOWN INDICATION
  5. KEPPRA [Concomitant]
     Indication: PRODUCT USED FOR UNKNOWN INDICATION

REACTIONS (4)
  - Hepatotoxicity [Recovered/Resolved]
  - Psychotic disorder [Recovered/Resolved]
  - Conduct disorder [Recovered/Resolved]
  - Drug ineffective [Unknown]
